FAERS Safety Report 8096378-0 (Version None)
Quarter: 2012Q1

REPORT INFORMATION
  Report Type: 
  Country: None (occurrence: None)
  Receive Date: 20120129
  Receipt Date: 20111109
  Transmission Date: 20120608
  Serious: Yes (Other)
  Sender: FDA-Public Use
  Company Number: US-ABBOTT-11P-163-0872725-00

PATIENT
  Sex: Female
  Weight: 122.58 kg

DRUGS (6)
  1. HUMIRA [Suspect]
     Dates: start: 20111105
  2. METHOTREXATE [Concomitant]
     Indication: RHEUMATOID ARTHRITIS
  3. CELEBREX [Concomitant]
     Indication: RHEUMATOID ARTHRITIS
  4. FOLIC ACID [Concomitant]
     Indication: RHEUMATOID ARTHRITIS
  5. NEXIUM [Concomitant]
     Indication: GASTROOESOPHAGEAL REFLUX DISEASE
  6. HUMIRA [Suspect]
     Indication: RHEUMATOID ARTHRITIS
     Dates: start: 20080201, end: 20100901

REACTIONS (8)
  - RHEUMATOID ARTHRITIS [None]
  - JOINT ABSCESS [None]
  - PAIN [None]
  - DYSSTASIA [None]
  - OSTEOMYELITIS [None]
  - REMOVAL OF INTERNAL FIXATION [None]
  - ARTHRALGIA [None]
  - JOINT SWELLING [None]
